FAERS Safety Report 9773182 (Version 1)
Quarter: 2013Q4

REPORT INFORMATION
  Report Type: Spontaneous
  Country: US (occurrence: None)
  Receive Date: 20131217
  Receipt Date: 20131217
  Transmission Date: 20140711
  Serious: Yes (Hospitalization)
  Sender: FDA-Public Use
  Company Number: US-013351

PATIENT
  Age: 78 Year
  Sex: Male
  Weight: 78.93 kg

DRUGS (1)
  1. FIRMAGON [Suspect]
     Indication: PROSTATE CANCER
     Dosage: INITIAL DOSE
     Dates: start: 201310

REACTIONS (4)
  - Injection site erythema [None]
  - Skin disorder [None]
  - Diarrhoea [None]
  - Mental disorder [None]
